FAERS Safety Report 7412299-8 (Version None)
Quarter: 2011Q2

REPORT INFORMATION
  Report Type: 
  Country: None (occurrence: None)
  Receive Date: 20110413
  Receipt Date: 20110404
  Transmission Date: 20111010
  Serious: Yes (Hospitalization)
  Sender: FDA-Public Use
  Company Number: FR-ASTRAZENECA-2011SE20495

PATIENT
  Age: 794 Month
  Sex: Female

DRUGS (6)
  1. CRESTOR [Suspect]
     Route: 048
     Dates: start: 20100501, end: 20110304
  2. CORTANCYL [Concomitant]
  3. FLECAINE [Concomitant]
  4. CRESTOR [Suspect]
     Indication: HYPERCHOLESTEROLAEMIA
     Route: 048
     Dates: start: 20100416, end: 20100501
  5. IMUREL [Concomitant]
     Dates: start: 20110101
  6. ISOPTIN [Concomitant]
     Dosage: 40 MG ONE AND A HALF TIME PER DAY

REACTIONS (2)
  - COGNITIVE DISORDER [None]
  - PERSONALITY DISORDER [None]
